FAERS Safety Report 24207784 (Version 2)
Quarter: 2024Q3

REPORT INFORMATION
  Report Type: Spontaneous
  Country: US (occurrence: US)
  Receive Date: 20240814
  Receipt Date: 20240913
  Transmission Date: 20241016
  Serious: No
  Sender: APOTEX
  Company Number: US-APOTEX-2024AP009113

PATIENT
  Sex: Female

DRUGS (1)
  1. BUTORPHANOL TARTRATE [Suspect]
     Active Substance: BUTORPHANOL TARTRATE
     Indication: Product used for unknown indication
     Dosage: 1 DOSAGE FORM, Q.4H. (1-SPRAY 1-NOSTRIL))
     Route: 045
     Dates: start: 202407

REACTIONS (3)
  - Product dose omission issue [Unknown]
  - Physical product label issue [Unknown]
  - Product packaging quantity issue [Unknown]

NARRATIVE: CASE EVENT DATE: 20240101
